FAERS Safety Report 13693762 (Version 1)
Quarter: 2017Q2

REPORT INFORMATION
  Report Type: Spontaneous
  Country: US (occurrence: US)
  Receive Date: 20170627
  Receipt Date: 20170627
  Transmission Date: 20170830
  Serious: Yes (Other)
  Sender: FDA-Public Use
  Company Number: US-APOTEX-2017AP013353

PATIENT
  Age: 59 Year
  Sex: Female

DRUGS (1)
  1. OFLOXACIN. [Suspect]
     Active Substance: OFLOXACIN
     Indication: EAR INFECTION
     Dosage: 5 DROPS ON LEFT EAR, ROUTE-EAR DROP
     Route: 050
     Dates: start: 201706, end: 201706

REACTIONS (3)
  - Ear pain [Recovered/Resolved]
  - Ear haemorrhage [Recovered/Resolved]
  - Deafness [Not Recovered/Not Resolved]

NARRATIVE: CASE EVENT DATE: 201706
